FAERS Safety Report 8935493 (Version 1)
Quarter: 2012Q4

REPORT INFORMATION
  Report Type: Spontaneous
  Country: US (occurrence: None)
  Receive Date: 20121128
  Receipt Date: 20121128
  Transmission Date: 20130627
  Serious: Yes (Other)
  Sender: FDA-Public Use
  Company Number: None

PATIENT
  Sex: Female
  Weight: 141.07 kg

DRUGS (1)
  1. PERCOCET [Suspect]
     Indication: LUMBAR RADICULOPATHY
     Dosage: 1 tab qid po
     Route: 048
     Dates: start: 20121023, end: 20121114

REACTIONS (3)
  - Rash generalised [None]
  - Pruritus [None]
  - Product substitution issue [None]
